FAERS Safety Report 5803359-3 (Version None)
Quarter: 2008Q2

REPORT INFORMATION
  Report Type: 
  Country: None (occurrence: None)
  Receive Date: 20080627
  Receipt Date: 20080226
  Transmission Date: 20081010
  Serious: Yes (Other)
  Sender: FDA-Public Use
  Company Number: 551087

PATIENT
  Age: 58 Year
  Sex: Male

DRUGS (1)
  1. INTERFERON ALFA [Suspect]
     Indication: MYCOSIS FUNGOIDES
     Dosage: 90000000 UNIT DAILY INTRAMUSCULAR
     Route: 030

REACTIONS (1)
  - RETINOPATHY [None]
